FAERS Safety Report 7533185-9 (Version None)
Quarter: 2011Q2

REPORT INFORMATION
  Report Type: 
  Country: None (occurrence: None)
  Receive Date: 20110608
  Receipt Date: 20031001
  Transmission Date: 20111010
  Serious: Yes (Death)
  Sender: FDA-Public Use
  Company Number: PHHO2003JP10663

PATIENT
  Sex: Male
  Weight: 54.5 kg

DRUGS (3)
  1. DIOVAN [Suspect]
     Indication: HYPERTENSION
     Dosage: 80 MG
     Route: 048
     Dates: start: 20021105, end: 20021202
  2. DIOVAN [Suspect]
     Dosage: 160 MG
     Route: 048
     Dates: start: 20021203
  3. NORVASC [Concomitant]
     Indication: HYPERTENSION
     Dosage: 2.5 MG
     Route: 048
     Dates: start: 20030624

REACTIONS (8)
  - COMA [None]
  - CARDIAC FAILURE ACUTE [None]
  - CARDIO-RESPIRATORY ARREST [None]
  - BACK PAIN [None]
  - MYOCARDIAL ISCHAEMIA [None]
  - PULMONARY EMBOLISM [None]
  - CHEST PAIN [None]
  - ANEURYSM RUPTURED [None]
